FAERS Safety Report 21097980 (Version 1)
Quarter: 2022Q3

REPORT INFORMATION
  Report Type: Spontaneous
  Country: CN (occurrence: CN)
  Receive Date: 20220719
  Receipt Date: 20220719
  Transmission Date: 20221026
  Serious: Yes (Hospitalization, Other)
  Sender: FDA-Public Use
  Company Number: CN-SUN PHARMACEUTICAL INDUSTRIES LTD-2022R1-344653

PATIENT
  Age: 23 Year
  Sex: Female

DRUGS (1)
  1. ZOLPIDEM [Suspect]
     Active Substance: ZOLPIDEM TARTRATE
     Indication: Insomnia
     Dosage: 5 MILLIGRAM, DAILY
     Route: 065

REACTIONS (11)
  - Intentional overdose [Unknown]
  - Suicidal ideation [Unknown]
  - Substance abuse [Not Recovered/Not Resolved]
  - Drug withdrawal syndrome [Unknown]
  - Tremor [Unknown]
  - Hyperhidrosis [Unknown]
  - Palpitations [Not Recovered/Not Resolved]
  - Dysphoria [Unknown]
  - Depression [Unknown]
  - Drug dependence [Unknown]
  - Euphoric mood [Unknown]
